FAERS Safety Report 19089561 (Version 2)
Quarter: 2021Q2

REPORT INFORMATION
  Report Type: Report from Study
  Country: UG (occurrence: UG)
  Receive Date: 20210403
  Receipt Date: 20210514
  Transmission Date: 20210717
  Serious: Yes (Death, Hospitalization, Other)
  Sender: FDA-Public Use
  Company Number: UG-CIPLA LTD.-2021UG02501

PATIENT

DRUGS (5)
  1. COTRIMOXAZOLE [Concomitant]
     Active Substance: SULFAMETHOXAZOLE\TRIMETHOPRIM
     Indication: ANTIFUNGAL PROPHYLAXIS
     Dosage: 5 MILLILITER, BID
     Route: 065
  2. NYSTATIN. [Concomitant]
     Active Substance: NYSTATIN
     Indication: ORAL CANDIDIASIS
     Dosage: 5 MILLILITER, BID
     Route: 065
  3. LOPINAVIR/RITONAVIR [Suspect]
     Active Substance: LOPINAVIR\RITONAVIR
     Indication: HIV INFECTION
     Dosage: 5 DOSAGE (200/50 MG) FORM
     Route: 048
     Dates: start: 20161019, end: 20161130
  4. ZINC. [Concomitant]
     Active Substance: ZINC
     Indication: DIARRHOEA
     Dosage: 20 MILLIGRAM, QD
     Route: 065
  5. LAMIVUDINE/ZIDOVUDINE [Suspect]
     Active Substance: LAMIVUDINE\ZIDOVUDINE
     Indication: HIV INFECTION
     Dosage: 2.5 DOSAGE(150/75 MG) FORM, BID
     Route: 048
     Dates: start: 20161019, end: 20161130

REACTIONS (3)
  - Pneumonia [None]
  - Anaemia [None]
  - Diarrhoea [None]

NARRATIVE: CASE EVENT DATE: 20161129
